FAERS Safety Report 9144727 (Version 5)
Quarter: 2013Q4

REPORT INFORMATION
  Report Type: Spontaneous
  Country: US (occurrence: US)
  Receive Date: 20130306
  Receipt Date: 20131216
  Transmission Date: 20140711
  Serious: Yes (Hospitalization, Other)
  Sender: FDA-Public Use
  Company Number: US-009507513-1303USA001926

PATIENT
  Sex: Female
  Weight: 56.69 kg

DRUGS (4)
  1. FOSAMAX [Suspect]
     Indication: SENILE OSTEOPOROSIS
     Dosage: 70 MG, UNK
     Route: 048
     Dates: start: 200101, end: 200706
  2. BONIVA [Suspect]
     Indication: SENILE OSTEOPOROSIS
     Dosage: 150 MG, UNK
     Route: 048
     Dates: start: 200706
  3. FORTEO [Suspect]
     Indication: SENILE OSTEOPOROSIS
     Dosage: UNK
     Dates: start: 200903
  4. VITAMINS (UNSPECIFIED) [Concomitant]
     Indication: ROUTINE HEALTH MAINTENANCE
     Dosage: UNK
     Route: 048
     Dates: start: 1993

REACTIONS (67)
  - Anaemia postoperative [Unknown]
  - Intramedullary rod insertion [Unknown]
  - Fracture nonunion [Unknown]
  - Intramedullary rod insertion [Unknown]
  - Spinal fusion surgery [Unknown]
  - Femur fracture [Unknown]
  - Femur fracture [Unknown]
  - Suicidal ideation [Unknown]
  - Nervousness [Unknown]
  - Vitamin D deficiency [Unknown]
  - Anxiety [Unknown]
  - Gingival operation [Unknown]
  - Periodontal operation [Unknown]
  - Depression [Unknown]
  - Oral surgery [Unknown]
  - Blood cholesterol increased [Unknown]
  - Bunion [Unknown]
  - Nocturia [Unknown]
  - Haematuria [Unknown]
  - Osteopenia [Unknown]
  - Fall [Unknown]
  - Device failure [Unknown]
  - Arthropathy [Unknown]
  - Effusion [Unknown]
  - Tendonitis [Unknown]
  - Fatigue [Not Recovered/Not Resolved]
  - Weight increased [Unknown]
  - Dyspnoea [Unknown]
  - Muscular weakness [Unknown]
  - Amnesia [Unknown]
  - Dry skin [Unknown]
  - Thirst [Unknown]
  - Polyuria [Unknown]
  - Mental disorder [Unknown]
  - Vision blurred [Unknown]
  - Diplopia [Unknown]
  - Pollakiuria [Unknown]
  - Urine abnormality [Unknown]
  - Sexual dysfunction [Unknown]
  - Vulvovaginal dryness [Unknown]
  - Sleep disorder [Unknown]
  - Rheumatic disorder [Unknown]
  - Toxicity to various agents [Unknown]
  - Somatisation disorder [Unknown]
  - Fibromyalgia [Unknown]
  - Groin pain [Recovering/Resolving]
  - Spinal osteoarthritis [Unknown]
  - Intervertebral disc degeneration [Unknown]
  - Lumbar spinal stenosis [Unknown]
  - Spondylolisthesis [Unknown]
  - Bursitis [Unknown]
  - Tendonitis [Unknown]
  - Uterine leiomyoma [Unknown]
  - Facet joint syndrome [Unknown]
  - Seroma [Unknown]
  - Osteoarthritis [Unknown]
  - Bursitis [Unknown]
  - Malaise [Unknown]
  - Muscle spasms [Unknown]
  - Arthralgia [Unknown]
  - Pruritus [Unknown]
  - Myalgia [Unknown]
  - Arthralgia [Unknown]
  - Oedema peripheral [Unknown]
  - Drug ineffective [Unknown]
  - Constipation [Unknown]
  - Headache [Unknown]
